FAERS Safety Report 18564072 (Version 1)
Quarter: 2020Q4

REPORT INFORMATION
  Report Type: Spontaneous
  Country: US (occurrence: US)
  Receive Date: 20201127
  Receipt Date: 20201127
  Transmission Date: 20210114
  Serious: Yes (Death)
  Sender: FDA-Public Use
  Company Number: None

PATIENT
  Age: 66 Year
  Sex: Female

DRUGS (1)
  1. ZOLEDRONIC ACID SDV 4MG/5ML [Suspect]
     Active Substance: ZOLEDRONIC ACID
     Dosage: ?          OTHER FREQUENCY:OTHER;?
     Route: 041
     Dates: start: 201912, end: 202011

REACTIONS (1)
  - Death [None]

NARRATIVE: CASE EVENT DATE: 20201120
